FAERS Safety Report 20347596 (Version 1)
Quarter: 2022Q1

REPORT INFORMATION
  Report Type: Spontaneous
  Country: US (occurrence: US)
  Receive Date: 20220118
  Receipt Date: 20220118
  Transmission Date: 20220423
  Serious: Yes (Other)
  Sender: FDA-Public Use
  Company Number: US-PFIZER INC-202200010882

PATIENT
  Age: 73 Year
  Sex: Male
  Weight: 120.2 kg

DRUGS (1)
  1. VYNDAMAX [Suspect]
     Active Substance: TAFAMIDIS
     Indication: Amyloidosis
     Dosage: 61 MG, DAILY (ONE CAPSULE)
     Route: 048
     Dates: start: 202110

REACTIONS (2)
  - Pulmonary amyloidosis [Unknown]
  - Disease recurrence [Unknown]
